FAERS Safety Report 8814375 (Version 3)
Quarter: 2012Q4

REPORT INFORMATION
  Report Type: 
  Country: AU (occurrence: AU)
  Receive Date: 20120928
  Receipt Date: 20121025
  Transmission Date: 20130627
  Serious: Yes (Other)
  Sender: FDA-Public Use
  Company Number: PHHY2012AU082982

PATIENT
  Age: 70 Year
  Sex: Female

DRUGS (11)
  1. EXJADE [Suspect]
     Indication: IRON OVERLOAD
     Dosage: 1000 mg, UNK
     Route: 048
     Dates: start: 20120822, end: 20120917
  2. CADUET [Concomitant]
     Indication: HYPERTENSION
     Dosage: 10 mg, UNK
     Route: 048
  3. CADUET [Concomitant]
     Dosage: 20 mg, UNK
  4. AVAPRO [Concomitant]
     Indication: HYPERTENSION
     Dosage: 150 mg, UNK
     Route: 048
  5. AVAPRO [Concomitant]
     Dosage: 12.5 mg, UNK
  6. LIPITOR [Concomitant]
  7. PARIET [Concomitant]
     Indication: GASTROOESOPHAGEAL REFLUX DISEASE
     Route: 048
  8. HUMALOG [Concomitant]
     Indication: TYPE 1 DIABETES MELLITUS
     Dosage: 6 UKN, UNK
     Route: 058
  9. HUMALOG [Concomitant]
     Dosage: 20 UKN, UNK
  10. LANTUS [Concomitant]
     Indication: TYPE 1 DIABETES MELLITUS
     Dosage: 6 UKN, UNK
     Route: 058
  11. LANTUS [Concomitant]
     Dosage: 12 UKN, UNK

REACTIONS (8)
  - Blood glucose increased [Recovering/Resolving]
  - Blood glucose decreased [Unknown]
  - Hypophagia [Unknown]
  - Tremor [Unknown]
  - Dizziness [Unknown]
  - Nausea [Unknown]
  - Nervousness [Unknown]
  - Constipation [Not Recovered/Not Resolved]
